FAERS Safety Report 5712497-5 (Version None)
Quarter: 2008Q2

REPORT INFORMATION
  Report Type: 
  Country: None (occurrence: None)
  Receive Date: 20080422
  Receipt Date: 20080408
  Transmission Date: 20081010
  Serious: Yes (Other)
  Sender: FDA-Public Use
  Company Number: CA-AMGEN-US273756

PATIENT
  Sex: Female

DRUGS (9)
  1. ARANESP [Suspect]
     Indication: RENAL FAILURE CHRONIC
  2. PREDNISONE [Concomitant]
  3. HYDROXYCHLOROQUINE [Concomitant]
  4. UNSPECIFIED DIURETIC [Concomitant]
  5. NORVASC [Concomitant]
  6. RAMIPRIL [Concomitant]
  7. DEXEDRINE [Concomitant]
  8. WELLBUTRIN [Concomitant]
  9. PROZAC [Concomitant]

REACTIONS (4)
  - CARDIAC MURMUR [None]
  - HAEMOGLOBIN DECREASED [None]
  - MEMORY IMPAIRMENT [None]
  - ROAD TRAFFIC ACCIDENT [None]
